FAERS Safety Report 18063666 (Version 2)
Quarter: 2021Q1

REPORT INFORMATION
  Report Type: Spontaneous
  Country: US (occurrence: US)
  Receive Date: 20200724
  Receipt Date: 20210111
  Transmission Date: 20210419
  Serious: Yes (Other)
  Sender: FDA-Public Use
  Company Number: US-GILEAD-2020-0484588

PATIENT
  Age: 68 Year
  Sex: Male

DRUGS (1)
  1. TRUVADA [Suspect]
     Active Substance: EMTRICITABINE\TENOFOVIR DISOPROXIL FUMARATE
     Indication: HIV INFECTION
     Dosage: UNK
     Route: 048
     Dates: start: 2000, end: 201403

REACTIONS (6)
  - Chronic kidney disease [Unknown]
  - Multiple fractures [Unknown]
  - Ankle fracture [Recovered/Resolved]
  - Bone density decreased [Unknown]
  - Osteopenia [Unknown]
  - Renal failure [Unknown]

NARRATIVE: CASE EVENT DATE: 2014
